FAERS Safety Report 5693810-4 (Version None)
Quarter: 2008Q2

REPORT INFORMATION
  Report Type: 
  Country: None (occurrence: None)
  Receive Date: 20080403
  Receipt Date: 20000808
  Transmission Date: 20081010
  Serious: Yes (Death)
  Sender: FDA-Public Use
  Company Number: US-ROCHE-242820

PATIENT
  Age: 50 Year
  Sex: Male
  Weight: 46.9 kg

DRUGS (8)
  1. CAPECITABINE [Suspect]
     Indication: METASTASIS
     Route: 048
     Dates: start: 20000606, end: 20000802
  2. MORPHINE [Concomitant]
  3. STEROID [Concomitant]
  4. METRONIDAZOLE HCL [Concomitant]
  5. SPIRONOLACTONE [Concomitant]
  6. PEDIALYTE [Concomitant]
  7. PHENERGAN [Concomitant]
  8. AREDIA [Concomitant]

REACTIONS (3)
  - ASTHENIA [None]
  - DISEASE PROGRESSION [None]
  - FATIGUE [None]
